FAERS Safety Report 8412387-3 (Version None)
Quarter: 2012Q2

REPORT INFORMATION
  Report Type: 
  Country: None (occurrence: None)
  Receive Date: 20120531
  Receipt Date: 20120531
  Transmission Date: 20120825
  Serious: Yes (Hospitalization)
  Sender: FDA-Public Use
  Company Number: None

PATIENT
  Sex: Male
  Weight: 100.3 kg

DRUGS (3)
  1. BEVACIZUMAB (RHUMAB VEGF) [Suspect]
     Dosage: 1443 MG
  2. TAXOL [Suspect]
     Dosage: 440 MG
  3. CARBOPLATIN [Suspect]
     Dosage: 893 MG

REACTIONS (5)
  - DIARRHOEA HAEMORRHAGIC [None]
  - HYPOTENSION [None]
  - GASTRIC ULCER [None]
  - FAECAL INCONTINENCE [None]
  - LOSS OF CONSCIOUSNESS [None]
